FAERS Safety Report 8955762 (Version 1)
Quarter: 2012Q4

REPORT INFORMATION
  Report Type: 
  Country: US (occurrence: US)
  Receive Date: 20121210
  Receipt Date: 20121210
  Transmission Date: 20130627
  Serious: Yes (Other)
  Sender: FDA-Public Use
  Company Number: US-VERTEX PHARMACEUTICALS INC.-2012-025693

PATIENT
  Age: 62 Year
  Sex: Female
  Weight: 50 kg

DRUGS (12)
  1. VX-950 (TELAPREVIR) [Suspect]
     Indication: HEPATITIS C
     Dosage: 750 mg, tid
     Route: 048
  2. PEGASYS PFS [Concomitant]
     Dosage: 180 ?g, UNK
  3. RIBAPAK [Concomitant]
     Dosage: 800 mg, UNK
  4. ADVAIR HFA [Concomitant]
  5. CANASA [Concomitant]
  6. FLUTICASONE [Concomitant]
     Dosage: 50 ?g, UNK
  7. PROAIR HFA [Concomitant]
  8. VITAMIN D /00107901/ [Concomitant]
     Dosage: 2000 ut, UNK
  9. TUMS                               /00193601/ [Concomitant]
     Dosage: 500 mg, UNK
  10. GUAIFENESIN [Concomitant]
  11. CITALOPRAM [Concomitant]
     Dosage: 10 mg, UNK
  12. ZOVIRAX                            /00587301/ [Concomitant]

REACTIONS (7)
  - Dyspnoea [Recovered/Resolved]
  - Throat tightness [Recovered/Resolved]
  - Aphonia [Recovered/Resolved]
  - Herpes virus infection [Unknown]
  - Cough [Recovered/Resolved]
  - Pyrexia [Unknown]
  - Fatigue [Unknown]
